FAERS Safety Report 20691173 (Version 1)
Quarter: 2022Q2

REPORT INFORMATION
  Report Type: Spontaneous
  Country: US (occurrence: US)
  Receive Date: 20220408
  Receipt Date: 20220408
  Transmission Date: 20220720
  Serious: No
  Sender: FDA-Public Use
  Company Number: US-INTRA-CELLULAR THERAPIES, INC.-2022ICT00139

PATIENT
  Age: 7 Decade
  Sex: Female
  Weight: 58.967 kg

DRUGS (2)
  1. CAPLYTA [Suspect]
     Active Substance: LUMATEPERONE
     Indication: Bipolar disorder
     Dosage: LESS THAN THE FULL AMOUNT OF THE CONTENTS WITHIN THE CAPSULE, 1X/DAY
     Route: 048
     Dates: start: 20220113, end: 2022
  2. CAPLYTA [Suspect]
     Active Substance: LUMATEPERONE
     Indication: Borderline personality disorder
     Dosage: 42 MG, 1X/DAY
     Route: 048
     Dates: start: 2022

REACTIONS (4)
  - Gastrointestinal pain [Recovered/Resolved]
  - Abdominal discomfort [Recovered/Resolved]
  - Diarrhoea [Recovered/Resolved]
  - Incorrect dosage administered [Recovered/Resolved]

NARRATIVE: CASE EVENT DATE: 20220101
